FAERS Safety Report 5523895-7 (Version None)
Quarter: 2007Q4

REPORT INFORMATION
  Report Type: 
  Country: None (occurrence: None)
  Receive Date: 20071121
  Receipt Date: 20071116
  Transmission Date: 20080405
  Serious: Yes (Hospitalization)
  Sender: FDA-Public Use
  Company Number: US-SHR-US-2006-042014

PATIENT
  Age: 43 Year
  Sex: Female

DRUGS (3)
  1. BETASERON [Suspect]
     Indication: MULTIPLE SCLEROSIS
     Dosage: 2 MIU, EVERY 2D
     Route: 058
     Dates: start: 20060404
  2. PREDNISONE TAB [Concomitant]
  3. MULTIPLE UNSPECIFIED MEDICATIONS [Concomitant]

REACTIONS (2)
  - BLADDER DISORDER [None]
  - MULTIPLE SCLEROSIS [None]
